FAERS Safety Report 5472565-2 (Version None)
Quarter: 2007Q3

REPORT INFORMATION
  Report Type: 
  Country: None (occurrence: None)
  Receive Date: 20070926
  Receipt Date: 20070910
  Transmission Date: 20080115
  Serious: Yes (Death, Hospitalization)
  Sender: FDA-Public Use
  Company Number: DSA_30633_2007

PATIENT
  Age: 58 Year
  Sex: Male

DRUGS (11)
  1. ENALAPRIL MALEATE [Suspect]
     Indication: ESSENTIAL HYPERTENSION
     Dosage: 20 MG QD ORAL
     Route: 048
     Dates: end: 20070718
  2. GLUCOPHAGE [Suspect]
     Dosage: DF
  3. ELAVIL [Suspect]
     Indication: DIABETIC NEUROPATHY
     Dosage: 10 MG BID ORAL, (DF)
     Route: 048
     Dates: start: 20070629
  4. ELAVIL [Suspect]
     Indication: POLYNEUROPATHY
     Dosage: 10 MG BID ORAL, (DF)
     Route: 048
     Dates: start: 20070629
  5. LYRICA [Suspect]
     Indication: DIABETIC NEUROPATHY
     Dosage: 200 MG TID ORAL, (DF)
     Route: 048
     Dates: start: 20070629
  6. LYRICA [Suspect]
     Indication: POLYNEUROPATHY
     Dosage: 200 MG TID ORAL, (DF)
     Route: 048
     Dates: start: 20070629
  7. THERAPY UNSPECIFIED [Suspect]
     Indication: DIABETES MELLITUS
     Dosage: 3 G QD
  8. BEVIPLEX /00389901/ [Concomitant]
  9. GLYBURIDE [Concomitant]
  10. INSULATARD / 00030504/ [Concomitant]
  11. SALURES [Concomitant]

REACTIONS (8)
  - C-REACTIVE PROTEIN INCREASED [None]
  - DIALYSIS [None]
  - GENERAL PHYSICAL HEALTH DETERIORATION [None]
  - LACTIC ACIDOSIS [None]
  - MULTI-ORGAN FAILURE [None]
  - MYOGLOBIN BLOOD INCREASED [None]
  - RENAL FAILURE [None]
  - UNEVALUABLE EVENT [None]
